FAERS Safety Report 20007975 (Version 7)
Quarter: 2023Q1

REPORT INFORMATION
  Report Type: Spontaneous
  Country: US (occurrence: US)
  Receive Date: 20211028
  Receipt Date: 20230223
  Transmission Date: 20230417
  Serious: No
  Sender: FDA-Public Use
  Company Number: US-PFIZER INC-2021872909

PATIENT
  Age: 71 Year
  Sex: Female
  Weight: 64.853 kg

DRUGS (1)
  1. XELJANZ XR [Suspect]
     Active Substance: TOFACITINIB CITRATE
     Dosage: 11 MG, DAILY
     Route: 048

REACTIONS (3)
  - Diarrhoea [Unknown]
  - Pain [Unknown]
  - Glycosylated haemoglobin increased [Unknown]
